FAERS Safety Report 5591040-8 (Version None)
Quarter: 2008Q1

REPORT INFORMATION
  Report Type: 
  Country: None (occurrence: None)
  Receive Date: 20080115
  Receipt Date: 20080107
  Transmission Date: 20080703
  Serious: Yes (Hospitalization)
  Sender: FDA-Public Use
  Company Number: JP-ELI_LILLY_AND_COMPANY-JP200801001763

PATIENT
  Sex: Female
  Weight: 46.5 kg

DRUGS (4)
  1. ZYPREXA [Suspect]
     Route: 048
  2. ZYPREXA [Suspect]
     Dosage: 10 MG, DAILY (1/D)
     Route: 048
  3. MAGMITT [Concomitant]
     Indication: CONSTIPATION PROPHYLAXIS
     Route: 048
  4. VITAMINE C [Concomitant]

REACTIONS (5)
  - BLOOD GLUCOSE INCREASED [None]
  - HOSPITALISATION [None]
  - INCREASED APPETITE [None]
  - VISION BLURRED [None]
  - WEIGHT INCREASED [None]
